FAERS Safety Report 17777500 (Version 2)
Quarter: 2021Q1

REPORT INFORMATION
  Report Type: Report from Study
  Country: US (occurrence: US)
  Receive Date: 20200513
  Receipt Date: 20210311
  Transmission Date: 20210419
  Serious: Yes (Death, Other)
  Sender: FDA-Public Use
  Company Number: US-ACADIA PHARMACEUTICALS INC.-ACA-2019-014685

PATIENT
  Age: 84 Year
  Sex: Male

DRUGS (4)
  1. AQUAPHOR [Concomitant]
     Active Substance: PETROLATUM
     Indication: FUNGAL SKIN INFECTION
  2. NUPLAZID [Suspect]
     Active Substance: PIMAVANSERIN TARTRATE
     Indication: HALLUCINATION
     Dosage: 34 MILLIGRAM QD
     Route: 048
     Dates: start: 20200103
  3. NUPLAZID [Suspect]
     Active Substance: PIMAVANSERIN TARTRATE
     Indication: DELUSION
  4. NUPLAZID [Suspect]
     Active Substance: PIMAVANSERIN TARTRATE
     Indication: PARKINSON^S DISEASE PSYCHOSIS
     Dosage: 34 MG, QD
     Route: 048
     Dates: start: 20191106

REACTIONS (8)
  - Gait inability [Unknown]
  - Restlessness [Not Recovered/Not Resolved]
  - Parkinson^s disease [Recovered/Resolved]
  - Middle insomnia [Not Recovered/Not Resolved]
  - Diarrhoea [Unknown]
  - Ocular hyperaemia [Unknown]
  - Drug ineffective [Unknown]
  - Hallucination [Not Recovered/Not Resolved]

NARRATIVE: CASE EVENT DATE: 201911
